FAERS Safety Report 6972847-9 (Version None)
Quarter: 2010Q3

REPORT INFORMATION
  Report Type: 
  Country: None (occurrence: None)
  Receive Date: 20100909
  Receipt Date: 20100830
  Transmission Date: 20110219
  Serious: Yes (Other)
  Sender: FDA-Public Use
  Company Number: PHHY2010JP58076

PATIENT

DRUGS (2)
  1. NEORAL [Suspect]
     Indication: HISTIOCYTOSIS HAEMATOPHAGIC
     Route: 048
  2. STEROIDS NOS [Concomitant]

REACTIONS (3)
  - ALTERED STATE OF CONSCIOUSNESS [None]
  - CEREBRAL ISCHAEMIA [None]
  - IMMUNOSUPPRESSANT DRUG LEVEL INCREASED [None]
